FAERS Safety Report 16465692 (Version 1)
Quarter: 2019Q2

REPORT INFORMATION
  Report Type: Spontaneous
  Country: FR (occurrence: FR)
  Receive Date: 20190621
  Receipt Date: 20190621
  Transmission Date: 20190711
  Serious: Yes (Death)
  Sender: FDA-Public Use
  Company Number: FR-ASTRAZENECA-2019SE90483

PATIENT
  Age: 19650 Day
  Sex: Female

DRUGS (1)
  1. FASENRA [Suspect]
     Active Substance: BENRALIZUMAB
     Indication: ASTHMA
     Route: 058
     Dates: start: 20190521

REACTIONS (2)
  - Cardiac arrest [Fatal]
  - Asthmatic crisis [Fatal]

NARRATIVE: CASE EVENT DATE: 20190531
